FAERS Safety Report 12623489 (Version 1)
Quarter: 2016Q3

REPORT INFORMATION
  Report Type: Spontaneous
  Country: US (occurrence: US)
  Receive Date: 20160804
  Receipt Date: 20160804
  Transmission Date: 20161109
  Serious: Yes (Hospitalization)
  Sender: FDA-Public Use
  Company Number: US-009507513-1608USA001263

PATIENT
  Age: 61 Year
  Sex: Female

DRUGS (5)
  1. MOMETASONE FUROATE (ORAL) [Suspect]
     Active Substance: MOMETASONE FUROATE
     Indication: SKIN IRRITATION
     Dosage: UNK
     Dates: start: 20160526
  2. LOTRISONE [Suspect]
     Active Substance: BETAMETHASONE DIPROPIONATE\CLOTRIMAZOLE
     Indication: SKIN IRRITATION
  3. HYDROCORTONE [Concomitant]
     Active Substance: HYDROCORTISONE
     Indication: SKIN IRRITATION
     Dosage: UNK
     Dates: start: 20160512, end: 20160523
  4. PREMARIN [Concomitant]
     Active Substance: ESTROGENS, CONJUGATED
     Indication: SKIN IRRITATION
     Dosage: UNK, QD
     Dates: start: 20160523
  5. LOTRISONE [Suspect]
     Active Substance: BETAMETHASONE DIPROPIONATE\CLOTRIMAZOLE
     Indication: RASH
     Dosage: UNK
     Dates: start: 201605

REACTIONS (1)
  - Drug ineffective [Unknown]

NARRATIVE: CASE EVENT DATE: 201605
